FAERS Safety Report 5444018-9 (Version None)
Quarter: 2007Q3

REPORT INFORMATION
  Report Type: 
  Country: None (occurrence: None)
  Receive Date: 20070831
  Receipt Date: 20070823
  Transmission Date: 20080115
  Serious: Yes (Death)
  Sender: FDA-Public Use
  Company Number: 2007US002038

PATIENT
  Age: 54 Year
  Sex: Male

DRUGS (2)
  1. PROGRAF [Suspect]
     Indication: IMMUNOSUPPRESSION
     Dosage: BID, ORAL
     Route: 048
     Dates: start: 20020725, end: 20070507
  2. CELLCEPT [Concomitant]

REACTIONS (12)
  - BRADYCARDIA [None]
  - CARDIAC ARREST [None]
  - COAGULOPATHY [None]
  - CULTURE TISSUE SPECIMEN POSITIVE [None]
  - ESCHERICHIA INFECTION [None]
  - HYPOTENSION [None]
  - LEG AMPUTATION [None]
  - PSEUDOMONAS INFECTION [None]
  - SEPSIS [None]
  - SUPRAVENTRICULAR TACHYCARDIA [None]
  - THROMBOCYTOPENIA [None]
  - WOUND INFECTION [None]
